FAERS Safety Report 6544601-3 (Version None)
Quarter: 2010Q1

REPORT INFORMATION
  Report Type: 
  Country: None (occurrence: None)
  Receive Date: 20100121
  Receipt Date: 20100111
  Transmission Date: 20100710
  Serious: Yes (Other)
  Sender: FDA-Public Use
  Company Number: PHHY2009BR43210

PATIENT
  Sex: Female

DRUGS (7)
  1. DIOVAN HCT [Suspect]
     Indication: CARDIAC DISORDER
     Dosage: 1 TABLET A DAY, IN THE MORNING
     Route: 048
  2. DIOVAN HCT [Suspect]
     Dosage: 160/25MG
  3. AMLODIPINE BESYLATE [Concomitant]
     Dosage: 5 MG, QHS
     Route: 048
  4. CRESTOR [Concomitant]
     Dosage: 10 MG, QHS
     Route: 048
  5. BUFFERIN [Concomitant]
     Dosage: 1 DF, QHS
     Route: 048
  6. SELOZOK [Concomitant]
     Dosage: 1 DF, QD
     Route: 048
  7. MEMANTINE HCL [Concomitant]
     Dosage: 10 MG, BID
     Route: 048

REACTIONS (3)
  - DEMENTIA ALZHEIMER'S TYPE [None]
  - EMBOLISM [None]
  - MEMORY IMPAIRMENT [None]
